FAERS Safety Report 5798533-9 (Version None)
Quarter: 2008Q3

REPORT INFORMATION
  Report Type: 
  Country: None (occurrence: None)
  Receive Date: 20080702
  Receipt Date: 20080625
  Transmission Date: 20090109
  Serious: Yes (Death, Hospitalization, Other)
  Sender: FDA-Public Use
  Company Number: JP-WYE-H01874207

PATIENT
  Sex: Male
  Weight: 54 kg

DRUGS (9)
  1. MYLOTARG [Suspect]
     Indication: ACUTE MYELOID LEUKAEMIA RECURRENT
     Route: 041
     Dates: start: 20070812, end: 20070812
  2. MYLOTARG [Suspect]
     Route: 041
     Dates: start: 20070921, end: 20070921
  3. MITOXANTRONE [Concomitant]
     Indication: ACUTE MYELOID LEUKAEMIA RECURRENT
     Route: 042
     Dates: start: 20071228, end: 20080103
  4. LASTET [Suspect]
     Indication: ACUTE MYELOID LEUKAEMIA RECURRENT
     Dosage: UNKNOWN DOSE
     Route: 042
     Dates: start: 20071228, end: 20080103
  5. LASTET [Suspect]
     Dosage: UNKNOWN DOSE
     Route: 042
     Dates: start: 20080209, end: 20080214
  6. IDARUBICIN HCL [Suspect]
     Indication: ACUTE MYELOID LEUKAEMIA RECURRENT
     Route: 042
     Dates: start: 20070809, end: 20070815
  7. CYTARABINE [Suspect]
     Indication: ACUTE MYELOID LEUKAEMIA RECURRENT
     Route: 042
     Dates: start: 20070809, end: 20070815
  8. CYTARABINE [Suspect]
     Dosage: UNKNOWN DOSE
     Route: 042
     Dates: start: 20071228, end: 20080103
  9. CYTARABINE [Suspect]
     Dosage: UNKNOWN DOSE
     Route: 042
     Dates: start: 20080209, end: 20080214

REACTIONS (8)
  - ANAEMIA [None]
  - ANOREXIA [None]
  - CEREBRAL HAEMORRHAGE [None]
  - FEBRILE NEUTROPENIA [None]
  - MALAISE [None]
  - NEUTROPHIL COUNT DECREASED [None]
  - PLATELET COUNT DECREASED [None]
  - SEPSIS [None]
